FAERS Safety Report 9696800 (Version 3)
Quarter: 2014Q1

REPORT INFORMATION
  Report Type: Spontaneous
  Country: US (occurrence: US)
  Receive Date: 20131119
  Receipt Date: 20140324
  Transmission Date: 20141002
  Serious: Yes (Hospitalization, Other)
  Sender: FDA-Public Use
  Company Number: US-GILEAD-2013-0085913

PATIENT
  Sex: Female

DRUGS (2)
  1. LETAIRIS [Suspect]
     Indication: PULMONARY HYPERTENSION
     Dosage: 10 MG, QD
     Route: 048
     Dates: start: 20130506
  2. ADCIRCA [Concomitant]

REACTIONS (5)
  - Pulmonary arterial hypertension [Unknown]
  - Neoplasm malignant [Unknown]
  - Liver transplant [Unknown]
  - Hypotension [Unknown]
  - Septic shock [Unknown]
